FAERS Safety Report 7500900-X (Version None)
Quarter: 2011Q2

REPORT INFORMATION
  Report Type: 
  Country: None (occurrence: None)
  Receive Date: 20110524
  Receipt Date: 20110518
  Transmission Date: 20111010
  Serious: Yes (Other)
  Sender: FDA-Public Use
  Company Number: D0071064A

PATIENT
  Sex: Male

DRUGS (5)
  1. DICLOFENAC SODIUM [Concomitant]
     Route: 065
  2. COTRIM [Concomitant]
     Route: 065
  3. FERROSANOL [Concomitant]
     Route: 065
  4. ERGOCALCIFEROL [Concomitant]
     Route: 065
  5. PROMACTA [Suspect]
     Dosage: 50MG PER DAY
     Route: 048
     Dates: start: 20100601

REACTIONS (3)
  - PLATELET DISORDER [None]
  - HAEMOGLOBIN DECREASED [None]
  - THROMBOCYTOPENIA [None]
